FAERS Safety Report 14211555 (Version 1)
Quarter: 2017Q4

REPORT INFORMATION
  Report Type: Spontaneous
  Country: US (occurrence: US)
  Receive Date: 20171121
  Receipt Date: 20171121
  Transmission Date: 20180321
  Serious: Yes (Death)
  Sender: FDA-Public Use
  Company Number: US-ABBVIE-17P-163-2169783-00

PATIENT
  Age: 52 Year
  Sex: Male

DRUGS (1)
  1. SEVOFLURANE. [Suspect]
     Active Substance: SEVOFLURANE
     Indication: PRODUCT USED FOR UNKNOWN INDICATION
     Route: 065

REACTIONS (3)
  - Hypertension [Fatal]
  - Hyperthermia [Fatal]
  - Toxicity to various agents [Fatal]
